FAERS Safety Report 11410228 (Version 1)
Quarter: 2015Q3

REPORT INFORMATION
  Report Type: Spontaneous
  Country: US (occurrence: US)
  Receive Date: 20150824
  Receipt Date: 20150824
  Transmission Date: 20151125
  Serious: Yes (Death)
  Sender: FDA-Public Use
  Company Number: US-JNJFOC-20150812331

PATIENT

DRUGS (5)
  1. MESNA. [Concomitant]
     Active Substance: MESNA
     Indication: SOFT TISSUE SARCOMA
     Dosage: PER DOSE AT HOURS 0,4 AND 8
     Route: 065
  2. FILGRASTIM [Concomitant]
     Active Substance: FILGRASTIM
     Dosage: PER DOSE AT HOURS 0,4 AND 8
     Route: 065
  3. PEGFILGRASTIM [Concomitant]
     Active Substance: PEGFILGRASTIM
     Route: 065
  4. DOXORUBICIN HYDROCHLORIDE. [Suspect]
     Active Substance: DOXORUBICIN HYDROCHLORIDE
     Indication: SOFT TISSUE SARCOMA
     Dosage: ON DAYS 1-3 OVER 48 HOURS
     Route: 042
  5. IFOSFAMIDE. [Suspect]
     Active Substance: IFOSFAMIDE
     Indication: SOFT TISSUE SARCOMA
     Dosage: 2.5 G/M2/D
     Route: 065

REACTIONS (2)
  - Death [Fatal]
  - Off label use [Unknown]
